FAERS Safety Report 14761968 (Version 3)
Quarter: 2019Q3

REPORT INFORMATION
  Report Type: Report from Study
  Country: US (occurrence: US)
  Receive Date: 20180416
  Receipt Date: 20190716
  Transmission Date: 20191004
  Serious: Yes (Other)
  Sender: FDA-Public Use
  Company Number: US-ROCHE-2071814

PATIENT
  Age: 70 Year
  Sex: Female
  Weight: 89.44 kg

DRUGS (2)
  1. ACTEMRA [Suspect]
     Active Substance: TOCILIZUMAB
     Indication: OSTEOARTHRITIS
     Route: 058
     Dates: end: 20171229
  2. ACTEMRA [Suspect]
     Active Substance: TOCILIZUMAB
     Indication: RHEUMATOID ARTHRITIS
     Dosage: REFILL 3 TIMES, FOR 3 MONTHS
     Route: 058

REACTIONS (12)
  - Leukaemia [Not Recovered/Not Resolved]
  - White blood cell count increased [Recovered/Resolved]
  - Sinusitis [Recovering/Resolving]
  - Clavicle fracture [Recovered/Resolved]
  - Fall [Unknown]
  - Respiratory tract infection [Recovered/Resolved]
  - Malaise [Unknown]
  - Clavicle fracture [Unknown]
  - Sinusitis [Recovered/Resolved]
  - Malaise [Recovered/Resolved]
  - Cystitis [Not Recovered/Not Resolved]
  - Infection [Unknown]

NARRATIVE: CASE EVENT DATE: 20171111
